FAERS Safety Report 5683896-5 (Version None)
Quarter: 2008Q1

REPORT INFORMATION
  Report Type: 
  Country: None (occurrence: None)
  Receive Date: 20080327
  Receipt Date: 20080327
  Transmission Date: 20080703
  Serious: Yes (Death)
  Sender: FDA-Public Use
  Company Number: None

PATIENT
  Age: 72 Year
  Sex: Male
  Weight: 72.12 kg

DRUGS (1)
  1. METHOTREXATE [Suspect]
     Indication: DERMATITIS EXFOLIATIVE
     Dosage: 10 MG DAILY PO
     Route: 048

REACTIONS (15)
  - BACTERIAL INFECTION [None]
  - DEPRESSED LEVEL OF CONSCIOUSNESS [None]
  - GENERAL PHYSICAL HEALTH DETERIORATION [None]
  - IMMUNOSUPPRESSION [None]
  - INTERNATIONAL NORMALISED RATIO INCREASED [None]
  - MUCOSAL INFLAMMATION [None]
  - NEUTROPENIA [None]
  - OESOPHAGEAL CANDIDIASIS [None]
  - OESOPHAGEAL PAIN [None]
  - ORAL CANDIDIASIS [None]
  - PANCYTOPENIA [None]
  - REFUSAL OF TREATMENT BY RELATIVE [None]
  - RENAL FAILURE [None]
  - SEPSIS [None]
  - THERAPEUTIC AGENT TOXICITY [None]
